FAERS Safety Report 20599245 (Version 1)
Quarter: 2022Q1

REPORT INFORMATION
  Report Type: Spontaneous
  Country: US (occurrence: US)
  Receive Date: 20220315
  Receipt Date: 20220315
  Transmission Date: 20220423
  Serious: No
  Sender: FDA-Public Use
  Company Number: US-SA-SAC20220310001994

PATIENT
  Age: 51 Year
  Sex: Female

DRUGS (17)
  1. KEVZARA [Suspect]
     Active Substance: SARILUMAB
     Indication: Rheumatoid arthritis
     Dosage: UNK
     Route: 065
  2. ALEVE [Concomitant]
     Active Substance: NAPROXEN SODIUM
  3. BUSPIRONE [Concomitant]
     Active Substance: BUSPIRONE HYDROCHLORIDE
     Dosage: BUSPIRONE HCL POW(POWDER)
  4. DULOXETINE [Concomitant]
     Active Substance: DULOXETINE
     Dosage: DULOXETINE H POW(POWDER)
  5. FLONASE ALLERGY RELIEF [Concomitant]
     Active Substance: FLUTICASONE PROPIONATE
     Dosage: FLONASE ALLE SUS(SUSPENION)
  6. FOLATE SODIUM [Concomitant]
     Active Substance: FOLATE SODIUM
  7. GABAPENTIN [Concomitant]
     Active Substance: GABAPENTIN
     Dosage: GABAPENTIN POW (POWDER)
  8. LISINOPRIL [Concomitant]
     Active Substance: LISINOPRIL
     Dosage: LISINOPRIL POW(POWDER)
  9. MAGNESIUM [Concomitant]
     Active Substance: MAGNESIUM
  10. OMEPRAZOLE [Concomitant]
     Active Substance: OMEPRAZOLE
     Dosage: OMEPRAZOLE POW(POWDER)
  11. VITAMIN D NOS [Concomitant]
     Active Substance: VITAMIN D NOS
  12. ZYRTEC [Concomitant]
     Active Substance: CETIRIZINE HYDROCHLORIDE
  13. METOPROLOL [Concomitant]
     Active Substance: METOPROLOL
     Dosage: METOPROLOL S TB2 200MG
  14. ROPINIROLE HYDROCHLORIDE [Concomitant]
     Active Substance: ROPINIROLE HYDROCHLORIDE
     Dosage: ROPI IROLE H TAB 5MG
  15. PROBIOTICS NOS [Concomitant]
     Active Substance: PROBIOTICS NOS
     Dosage: PROBIOTIC PAC (PACKET)
  16. VITAMINS NOS [Concomitant]
     Active Substance: VITAMINS
  17. HYDROCHLOROTHIAZIDE [Concomitant]
     Active Substance: HYDROCHLOROTHIAZIDE
     Dosage: HYDROCHLOROT POW(POWDER)

REACTIONS (1)
  - Drug ineffective [Unknown]
